FAERS Safety Report 23487195 (Version 1)
Quarter: 2024Q1

REPORT INFORMATION
  Report Type: Spontaneous
  Country: US (occurrence: None)
  Receive Date: 20240206
  Receipt Date: 20240206
  Transmission Date: 20240409
  Serious: Yes (Hospitalization)
  Sender: FDA-Public Use
  Company Number: None

PATIENT
  Sex: Male

DRUGS (1)
  1. ALTUVIIIO [Suspect]
     Active Substance: EFANESOCTOCOG ALFA
     Indication: Factor VIII inhibition
     Dosage: STRENGHT: 3000?OTHER QUANTITY : 4000U;?FREQUENCY : WEEKLY;?
     Route: 042
     Dates: start: 202401

REACTIONS (1)
  - Face injury [None]

NARRATIVE: CASE EVENT DATE: 20240108
